FAERS Safety Report 5296017-8 (Version None)
Quarter: 2007Q2

REPORT INFORMATION
  Report Type: 
  Country: None (occurrence: None)
  Receive Date: 20070413
  Receipt Date: 20070409
  Transmission Date: 20071010
  Serious: Yes (Hospitalization)
  Sender: FDA-Public Use
  Company Number: US-GENENTECH-239671

PATIENT
  Sex: Female
  Weight: 60.6 kg

DRUGS (3)
  1. BEVACIZUMAB [Suspect]
     Indication: NON-SMALL CELL LUNG CANCER
     Dosage: 15 MG/KG, Q3W
     Route: 042
     Dates: start: 20070313
  2. PEMETREXED [Suspect]
     Indication: NON-SMALL CELL LUNG CANCER
     Dosage: 500 MG/M2, Q3W
     Route: 042
     Dates: start: 20070313
  3. CARBOPLATIN [Suspect]
     Indication: DRUG USE FOR UNKNOWN INDICATION
     Dosage: 6 UNK, Q3W
     Route: 042
     Dates: start: 20070313

REACTIONS (4)
  - ANAEMIA [None]
  - CONSTIPATION [None]
  - NAUSEA [None]
  - VOMITING [None]
